FAERS Safety Report 20235416 (Version 2)
Quarter: 2022Q1

REPORT INFORMATION
  Report Type: Report from Study
  Country: US (occurrence: None)
  Receive Date: 20211228
  Receipt Date: 20220317
  Transmission Date: 20220423
  Serious: Yes (Hospitalization, Other)
  Sender: FDA-Public Use
  Company Number: US-Merck Healthcare KGaA-9288630

PATIENT
  Age: 74 Year
  Sex: Female

DRUGS (2)
  1. REBIF [Suspect]
     Active Substance: INTERFERON BETA-1A
     Indication: Multiple sclerosis
     Route: 058
     Dates: start: 20150608
  2. MYRBETRIQ [Suspect]
     Active Substance: MIRABEGRON
     Indication: Product used for unknown indication

REACTIONS (6)
  - Urinary retention [Unknown]
  - Toxicity to various agents [Recovered/Resolved]
  - Road traffic accident [Unknown]
  - Loss of consciousness [Recovered/Resolved]
  - Aphasia [Recovered/Resolved]
  - Hypoaesthesia [Recovered/Resolved]

NARRATIVE: CASE EVENT DATE: 20211216
